FAERS Safety Report 24051817 (Version 1)
Quarter: 2024Q3

REPORT INFORMATION
  Report Type: Report from Study
  Country: CA (occurrence: CA)
  Receive Date: 20240704
  Receipt Date: 20240704
  Transmission Date: 20241016
  Serious: Yes (Other)
  Sender: JOHNSON AND JOHNSON
  Company Number: CA-JNJFOC-20240424234

PATIENT
  Age: 68 Year
  Sex: Female
  Weight: 69.008 kg

DRUGS (6)
  1. SIMPONI [Suspect]
     Active Substance: GOLIMUMAB
     Indication: Rheumatoid arthritis
     Route: 058
     Dates: start: 20220610
  2. SIMPONI [Suspect]
     Active Substance: GOLIMUMAB
     Route: 058
     Dates: start: 20220610
  3. SIMPONI [Suspect]
     Active Substance: GOLIMUMAB
     Route: 058
     Dates: start: 20220622
  4. SIMPONI [Suspect]
     Active Substance: GOLIMUMAB
     Route: 058
     Dates: start: 20220610
  5. SIMPONI [Suspect]
     Active Substance: GOLIMUMAB
     Dosage: EXPIRY: 01-NOV-2026
     Route: 058
     Dates: start: 20220610
  6. PREDNISONE [Suspect]
     Active Substance: PREDNISONE
     Indication: Product used for unknown indication
     Route: 065

REACTIONS (8)
  - Gastric ulcer [Not Recovered/Not Resolved]
  - Volvulus [Unknown]
  - Pain in extremity [Not Recovered/Not Resolved]
  - Chest discomfort [Unknown]
  - Arthralgia [Recovering/Resolving]
  - Peripheral swelling [Unknown]
  - Joint swelling [Recovered/Resolved]
  - Urinary tract infection [Unknown]

NARRATIVE: CASE EVENT DATE: 20240515
